FAERS Safety Report 8809236 (Version 1)
Quarter: 2012Q4

REPORT INFORMATION
  Report Type: 
  Country: US (occurrence: US)
  Receive Date: 20120926
  Receipt Date: 20120926
  Transmission Date: 20130627
  Serious: Yes (Hospitalization)
  Sender: FDA-Public Use
  Company Number: US-BAXTER-2012BAX018162

PATIENT
  Sex: Male

DRUGS (4)
  1. DOBUTAMINE  HYDROCHLORIDE IN 5% DEXTROSE INJECTION [Suspect]
     Indication: STRESS ECHOCARDIOGRAPHY
     Route: 042
  2. DOBUTAMINE  HYDROCHLORIDE IN 5% DEXTROSE INJECTION [Suspect]
     Indication: INTENTIONAL USE FOR UNLABELED INDICATION
     Route: 042
  3. DOBUTAMINE  HYDROCHLORIDE IN 5% DEXTROSE INJECTION [Suspect]
     Route: 042
  4. ATROPINE [Suspect]
     Indication: STRESS ECHOCARDIOGRAPHY
     Dosage: 0.25-1 MG
     Route: 042

REACTIONS (3)
  - Chest pain [Unknown]
  - Acute myocardial infarction [Unknown]
  - Coronary artery disease [None]
